FAERS Safety Report 8615797-4 (Version None)
Quarter: 2012Q3

REPORT INFORMATION
  Report Type: 
  Country: None (occurrence: None)
  Receive Date: 20120823
  Receipt Date: 20120803
  Transmission Date: 20120928
  Serious: Yes (Other)
  Sender: FDA-Public Use
  Company Number: US-BAXTER-2012BAX013679

PATIENT
  Sex: Female
  Weight: 95.5 kg

DRUGS (7)
  1. GAMMAGARD LIQUID [Suspect]
     Route: 058
     Dates: start: 20120712, end: 20120712
  2. GAMMAGARD LIQUID [Suspect]
     Route: 058
     Dates: start: 20120719, end: 20120719
  3. GAMMAGARD LIQUID [Suspect]
     Route: 058
     Dates: start: 20120727, end: 20120727
  4. VERAMYST [Concomitant]
     Route: 045
  5. XYZAL [Concomitant]
     Route: 048
  6. GAMMAGARD LIQUID [Suspect]
     Route: 058
     Dates: start: 20120803, end: 20120813
  7. BECLOMETHASONE DIPROPIONATE [Concomitant]
     Route: 045

REACTIONS (12)
  - DYSPHAGIA [None]
  - MUSCLE SPASMS [None]
  - URINARY TRACT DISORDER [None]
  - SYSTEMIC LUPUS ERYTHEMATOSUS [None]
  - FATIGUE [None]
  - ANXIETY [None]
  - THROAT IRRITATION [None]
  - FEELING ABNORMAL [None]
  - HOUSE DUST ALLERGY [None]
  - UPPER-AIRWAY COUGH SYNDROME [None]
  - OROPHARYNGEAL PAIN [None]
  - DYSPNOEA [None]
